FAERS Safety Report 18571125 (Version 1)
Quarter: 2020Q4

REPORT INFORMATION
  Report Type: Spontaneous
  Country: US (occurrence: US)
  Receive Date: 20201202
  Receipt Date: 20201202
  Transmission Date: 20210114
  Serious: No
  Sender: FDA-Public Use
  Company Number: US-ROCHE-2688727

PATIENT
  Age: 50 Year
  Sex: Male
  Weight: 61.29 kg

DRUGS (2)
  1. EVRYSDI [Suspect]
     Active Substance: RISDIPLAM
     Indication: SPINAL MUSCULAR ATROPHY
     Route: 048
  2. EVRYSDI [Suspect]
     Active Substance: RISDIPLAM
     Indication: SPINAL MUSCULAR ATROPHY
     Dosage: 6.6 ML ONCE DAILY ;ONGOING YES
     Route: 048
     Dates: start: 20200910

REACTIONS (5)
  - Wrong technique in product usage process [Unknown]
  - Oropharyngeal pain [Recovered/Resolved]
  - Product taste abnormal [Unknown]
  - Throat irritation [Recovered/Resolved]
  - Abdominal pain upper [Recovered/Resolved]

NARRATIVE: CASE EVENT DATE: 20201029
